FAERS Safety Report 8340571 (Version 3)
Quarter: 2015Q1

REPORT INFORMATION
  Report Type: Report from Study
  Country: US (occurrence: US)
  Receive Date: 20120117
  Receipt Date: 20150209
  Transmission Date: 20150721
  Serious: Yes (Death)
  Sender: FDA-Public Use
  Company Number: US-ROCHE-1028583

PATIENT
  Sex: Male

DRUGS (17)
  1. DECADRON [Concomitant]
     Active Substance: DEXAMETHASONE
     Route: 065
  2. TAXOTERE [Concomitant]
     Active Substance: DOCETAXEL
     Route: 065
  3. ANZEMET [Concomitant]
     Active Substance: DOLASETRON MESYLATE
     Route: 065
  4. GEMZAR [Concomitant]
     Active Substance: GEMCITABINE HYDROCHLORIDE
  5. ROCEPHIN [Suspect]
     Active Substance: CEFTRIAXONE SODIUM
     Indication: PRODUCT USED FOR UNKNOWN INDICATION
     Dosage: SUBSEQUENT DOSES RECIEVED ON: 24/JUL/2009,28/JUL/2009, 29/JUL/2009,30/JUL/2009, 04/AUG/2009,5/AUG/20
     Route: 042
     Dates: start: 20090723
  6. AVASTIN [Suspect]
     Active Substance: BEVACIZUMAB
     Indication: RETROPERITONEAL CANCER
  7. LEVAQUIN [Concomitant]
     Active Substance: LEVOFLOXACIN
     Route: 065
  8. CALCIUM GLUCONATE. [Concomitant]
     Active Substance: CALCIUM GLUCONATE
  9. AVASTIN [Suspect]
     Active Substance: BEVACIZUMAB
     Indication: NON-SMALL CELL LUNG CANCER
  10. CARBOPLATIN. [Concomitant]
     Active Substance: CARBOPLATIN
     Route: 065
  11. BENADRYL [Concomitant]
     Active Substance: DIPHENHYDRAMINE HYDROCHLORIDE
     Route: 065
  12. ATIVAN [Concomitant]
     Active Substance: LORAZEPAM
     Route: 065
  13. AVASTIN [Suspect]
     Active Substance: BEVACIZUMAB
     Indication: MALIGNANT MEDIASTINAL NEOPLASM
     Dosage: WEEKLY, SUBSEQUENT DOSES RECIEVED ON: 21/JUL/2009, 28/JUL/2009,04/AUG/2009,25/AUG/2009, 03/SEP/2009.
     Route: 042
     Dates: start: 20090714
  14. KYTRIL [Suspect]
     Active Substance: GRANISETRON HYDROCHLORIDE
     Indication: PRODUCT USED FOR UNKNOWN INDICATION
     Dosage: SUBSEQUENT DOSES RECIEVED ON: 29/JUL/2009,04/AUG/2009
     Route: 042
  15. VANCOMYCIN [Concomitant]
     Active Substance: VANCOMYCIN
     Route: 065
  16. GENTAMYCIN [Concomitant]
     Active Substance: GENTAMICIN
  17. MAGNESIUM SULFATE. [Concomitant]
     Active Substance: MAGNESIUM SULFATE
     Route: 065

REACTIONS (1)
  - Death [Fatal]
